FAERS Safety Report 5975201-1 (Version None)
Quarter: 2008Q4

REPORT INFORMATION
  Report Type: 
  Country: None (occurrence: None)
  Receive Date: 20081202
  Receipt Date: 20080917
  Transmission Date: 20090506
  Serious: No
  Sender: FDA-Public Use
  Company Number: US-ABBOTT-08P-163-0476726-00

PATIENT
  Sex: Female

DRUGS (1)
  1. LUPRON DEPOT [Suspect]
     Indication: PRECOCIOUS PUBERTY
     Dosage: EVERY FOUR WEEKS
     Route: 030
     Dates: start: 20080501

REACTIONS (6)
  - GAIT DISTURBANCE [None]
  - HEADACHE [None]
  - INFECTION [None]
  - PAIN [None]
  - PYREXIA [None]
  - SWELLING [None]
